FAERS Safety Report 4462041-8 (Version None)
Quarter: 2004Q3

REPORT INFORMATION
  Report Type: 
  Country: None (occurrence: None)
  Receive Date: 20040929
  Receipt Date: 20040921
  Transmission Date: 20050211
  Serious: Yes (Hospitalization)
  Sender: FDA-Public Use
  Company Number: US-AMGEN-US087735

PATIENT
  Sex: Female
  Weight: 86.3 kg

DRUGS (10)
  1. ARANESP [Suspect]
     Indication: RENAL FAILURE CHRONIC
     Route: 058
     Dates: start: 20040622, end: 20040622
  2. LEVOTHYROXINE SODIUM [Concomitant]
     Dates: start: 19981102
  3. ASPIRIN [Concomitant]
     Dates: start: 19981112
  4. HUMALOG [Concomitant]
     Dates: start: 19981112
  5. SIMVASTATIN [Concomitant]
     Dates: start: 19981114
  6. ALTACE [Concomitant]
     Dates: start: 19981112
  7. LASIX [Concomitant]
     Dates: start: 20001214
  8. ATENOLOL [Concomitant]
     Dates: start: 19981102
  9. AVAPRO [Concomitant]
     Dates: start: 20030904
  10. ANEXSIA [Concomitant]
     Dates: start: 20001214

REACTIONS (24)
  - ANAEMIA [None]
  - ARTHRALGIA [None]
  - ARTHRITIS [None]
  - BLOOD CREATININE INCREASED [None]
  - BLOOD GLUCOSE INCREASED [None]
  - BLOOD SODIUM DECREASED [None]
  - BLOOD UREA INCREASED [None]
  - ERYTHEMA [None]
  - FATIGUE [None]
  - HAEMOGLOBIN DECREASED [None]
  - HYPERKALAEMIA [None]
  - HYPERSENSITIVITY [None]
  - HYPONATRAEMIA [None]
  - JOINT SWELLING [None]
  - JOINT WARMTH [None]
  - LETHARGY [None]
  - MYALGIA [None]
  - OEDEMA [None]
  - PRURITUS [None]
  - RASH GENERALISED [None]
  - SERUM SICKNESS [None]
  - SOMNOLENCE [None]
  - TENDERNESS [None]
  - URTICARIA [None]
